FAERS Safety Report 8191024-X (Version None)
Quarter: 2012Q1

REPORT INFORMATION
  Report Type: 
  Country: None (occurrence: None)
  Receive Date: 20120307
  Receipt Date: 20120221
  Transmission Date: 20120608
  Serious: Yes (Other)
  Sender: FDA-Public Use
  Company Number: US-ENDO PHARMACEUTICALS INC.-OPER20110293

PATIENT
  Sex: Female

DRUGS (11)
  1. HYDROCODONE BITARTRATE [Concomitant]
     Indication: PAIN
     Dosage: 10 MG
     Route: 048
     Dates: end: 20111031
  2. OXYMORPHONE HYDROCHLORIDE [Suspect]
     Indication: BREAKTHROUGH PAIN
     Dosage: 10 MG
     Route: 048
     Dates: start: 20111101, end: 20111101
  3. BENTYL [Concomitant]
     Indication: PRODUCT USED FOR UNKNOWN INDICATION
     Dosage: UNK
  4. FLEETS ENEMA [Concomitant]
     Indication: CONSTIPATION
     Dosage: UNK
     Route: 054
  5. BACLOFEN [Concomitant]
     Indication: MUSCLE SPASMS
     Dosage: UNK
  6. BUTALBITAL ACETAMINOPHEN AND CAFFEINE [Concomitant]
     Indication: PRODUCT USED FOR UNKNOWN INDICATION
     Dosage: UNK
  7. ASPIRIN [Concomitant]
     Indication: CARDIOVASCULAR EVENT PROPHYLAXIS
     Route: 048
  8. DIAZEPAM [Concomitant]
     Indication: PRODUCT USED FOR UNKNOWN INDICATION
     Dosage: UNK
  9. OPANA ER [Suspect]
     Indication: PAIN
     Route: 048
     Dates: start: 20111031, end: 20111109
  10. PREVACID [Concomitant]
     Indication: GASTROOESOPHAGEAL REFLUX DISEASE
     Dosage: UNK
  11. AVONEX [Concomitant]
     Indication: MULTIPLE SCLEROSIS
     Dosage: UNK

REACTIONS (3)
  - INAPPROPRIATE SCHEDULE OF DRUG ADMINISTRATION [None]
  - PRURITUS [None]
  - ABDOMINAL PAIN UPPER [None]
